FAERS Safety Report 15749740 (Version 1)
Quarter: 2018Q4

REPORT INFORMATION
  Report Type: Report from Study
  Country: None (occurrence: US)
  Receive Date: 20181221
  Receipt Date: 20181221
  Transmission Date: 20190205
  Serious: Yes (Hospitalization)
  Sender: FDA-Public Use
  Company Number: US-ABBVIE-18K-163-2589296-00

PATIENT
  Age: 57 Year
  Sex: Female
  Weight: 83.99 kg

DRUGS (1)
  1. HUMIRA [Suspect]
     Active Substance: ADALIMUMAB
     Indication: RHEUMATOID ARTHRITIS
     Route: 058
     Dates: start: 201806, end: 201810

REACTIONS (5)
  - Impaired healing [Recovered/Resolved]
  - Implant site pain [Recovered/Resolved]
  - Infection [Recovered/Resolved]
  - Spinal nerve stimulator implantation [Recovered/Resolved]
  - Patient-device incompatibility [Recovered/Resolved]

NARRATIVE: CASE EVENT DATE: 20180922
